FAERS Safety Report 5093072-5 (Version None)
Quarter: 2006Q3

REPORT INFORMATION
  Report Type: 
  Country: None (occurrence: None)
  Receive Date: 20060828
  Receipt Date: 20060816
  Transmission Date: 20061208
  Serious: Yes (Other)
  Sender: FDA-Public Use
  Company Number: 2006099732

PATIENT
  Age: 61 Year
  Sex: Male
  Weight: 117 kg

DRUGS (5)
  1. LYRICA [Suspect]
     Indication: NEURALGIA
     Dosage: 150 MG (75 MG, 2 IN 1 D), ORAL
     Route: 048
     Dates: start: 20060113, end: 20060201
  2. TELMISARTAN (TELMISARTAN) [Concomitant]
  3. ATORVASTATIN CALCIUM [Concomitant]
  4. SLOZEM (DILTIAZEM HYDROCHLORIDE) [Concomitant]
  5. ISOSORBIDE MONONITRATE [Concomitant]

REACTIONS (2)
  - ATRIAL FIBRILLATION [None]
  - PALPITATIONS [None]
